FAERS Safety Report 6215821-2 (Version None)
Quarter: 2009Q2

REPORT INFORMATION
  Report Type: 
  Country: None (occurrence: None)
  Receive Date: 20090603
  Receipt Date: 20090526
  Transmission Date: 20091009
  Serious: Yes (Hospitalization)
  Sender: FDA-Public Use
  Company Number: 2009SP008151

PATIENT
  Age: 4 Year
  Sex: Female

DRUGS (2)
  1. DESLORATADINE [Suspect]
     Indication: RHINITIS
     Dosage: 1 DF; ONCE; PO
     Route: 048
     Dates: start: 20090405
  2. DESLORATADINE [Suspect]

REACTIONS (1)
  - NO ADVERSE EVENT [None]
